FAERS Safety Report 8462783-3 (Version None)
Quarter: 2012Q2

REPORT INFORMATION
  Report Type: 
  Country: None (occurrence: None)
  Receive Date: 20120625
  Receipt Date: 20120614
  Transmission Date: 20120825
  Serious: Yes (Other)
  Sender: FDA-Public Use
  Company Number: ZA-ASTRAZENECA-2012SE40124

PATIENT
  Age: 5387 Day
  Sex: Male
  Weight: 50 kg

DRUGS (3)
  1. SEROQUEL [Suspect]
     Indication: INSOMNIA
     Route: 048
     Dates: start: 20120511, end: 20120514
  2. OTHER DRUGS [Concomitant]
  3. YELLOW FEVER INJECTION [Suspect]

REACTIONS (6)
  - MYOCLONUS [None]
  - OFF LABEL USE [None]
  - DRUG INEFFECTIVE [None]
  - EXTRAPYRAMIDAL DISORDER [None]
  - INSOMNIA [None]
  - PSYCHOTIC BEHAVIOUR [None]
